FAERS Safety Report 4470588-3 (Version None)
Quarter: 2004Q4

REPORT INFORMATION
  Report Type: 
  Country: None (occurrence: None)
  Receive Date: 20041006
  Receipt Date: 20041006
  Transmission Date: 20050328
  Serious: No
  Sender: FDA-Public Use
  Company Number: None

PATIENT
  Age: 67 Year
  Sex: Male
  Weight: 101.6057 kg

DRUGS (1)
  1. TAXOL [Suspect]
     Dates: start: 20041005

REACTIONS (1)
  - MEDICAL DEVICE COMPLICATION [None]
